FAERS Safety Report 6942663-2 (Version None)
Quarter: 2010Q3

REPORT INFORMATION
  Report Type: 
  Country: None (occurrence: None)
  Receive Date: 20100826
  Receipt Date: 20100816
  Transmission Date: 20110219
  Serious: Yes (Hospitalization)
  Sender: FDA-Public Use
  Company Number: PHHY2010FR54504

PATIENT
  Sex: Female

DRUGS (6)
  1. VOLTAREN [Suspect]
     Dosage: UNK
     Dates: start: 20090825, end: 20090906
  2. SALAZOPYRINE [Suspect]
     Dosage: UNK
     Route: 048
     Dates: start: 20090825, end: 20090905
  3. ARAVA [Concomitant]
  4. HUMIRA [Concomitant]
     Dosage: UNK
     Dates: start: 20080301, end: 20090801
  5. METHOTREXATE [Concomitant]
     Dosage: UNK
     Dates: start: 20090909, end: 20090918
  6. RIFAMATE [Concomitant]
     Dosage: UNK
     Dates: start: 20090909, end: 20090918

REACTIONS (26)
  - ALPHA-1 ACID GLYCOPROTEIN INCREASED [None]
  - BLOOD ALKALINE PHOSPHATASE INCREASED [None]
  - BLOOD CREATINE PHOSPHOKINASE INCREASED [None]
  - BLOOD LACTATE DEHYDROGENASE INCREASED [None]
  - C-REACTIVE PROTEIN INCREASED [None]
  - DRUG RASH WITH EOSINOPHILIA AND SYSTEMIC SYMPTOMS [None]
  - EOSINOPHIL COUNT INCREASED [None]
  - EOSINOPHILIC PUSTULOSIS [None]
  - FACE OEDEMA [None]
  - GAMMA-GLUTAMYLTRANSFERASE INCREASED [None]
  - GASTROINTESTINAL DISORDER [None]
  - HAEMOGLOBIN DECREASED [None]
  - HEPATOSPLENOMEGALY [None]
  - LICHENOID KERATOSIS [None]
  - LIVER DISORDER [None]
  - LYMPHADENOPATHY [None]
  - LYMPHOCYTE COUNT ABNORMAL [None]
  - LYMPHOCYTIC INFILTRATION [None]
  - PYREXIA [None]
  - RASH MACULO-PAPULAR [None]
  - RASH PRURITIC [None]
  - RASH PUSTULAR [None]
  - RHEUMATOID ARTHRITIS [None]
  - SKIN DISORDER [None]
  - SKIN EXFOLIATION [None]
  - WHITE BLOOD CELL COUNT INCREASED [None]
